FAERS Safety Report 6195140-3 (Version None)
Quarter: 2009Q2

REPORT INFORMATION
  Report Type: 
  Country: None (occurrence: None)
  Receive Date: 20090519
  Receipt Date: 20090519
  Transmission Date: 20091009
  Serious: Yes (Other)
  Sender: FDA-Public Use
  Company Number: US-PFIZER INC-2009169848

PATIENT
  Sex: Female
  Weight: 77.098 kg

DRUGS (4)
  1. LYRICA [Suspect]
     Indication: FIBROMYALGIA
     Dosage: FREQUENCY: EVERY DAY;
     Route: 048
     Dates: start: 20090112
  2. ACETAMINOPHEN [Concomitant]
     Dosage: UNK
  3. PREDNISONE [Concomitant]
     Dosage: UNK
     Dates: start: 20090112
  4. AMOXICILLIN [Concomitant]
     Dates: start: 20090112, end: 20090212

REACTIONS (1)
  - THROAT TIGHTNESS [None]
